FAERS Safety Report 6177121-9 (Version None)
Quarter: 2009Q2

REPORT INFORMATION
  Report Type: 
  Country: None (occurrence: None)
  Receive Date: 20090430
  Receipt Date: 20090430
  Transmission Date: 20091009
  Serious: Yes (Hospitalization)
  Sender: FDA-Public Use
  Company Number: None

PATIENT
  Age: 45 Year
  Sex: Male

DRUGS (9)
  1. LEVOPHED [Suspect]
     Indication: HYPOTENSION
     Dates: start: 20081221, end: 20081221
  2. LEVOPHED [Suspect]
     Indication: POST PROCEDURAL HAEMORRHAGE
     Dates: start: 20081221, end: 20081221
  3. DIGOXIN [Concomitant]
  4. MILRINONE [Concomitant]
  5. FAMOTIDINE [Concomitant]
  6. COLACE [Concomitant]
  7. METOPROLOL [Concomitant]
  8. IRON SUPPLEMENT [Concomitant]
  9. RENAL DIALYSIS [Concomitant]

REACTIONS (9)
  - CELLULITIS [None]
  - DRUG INEFFECTIVE [None]
  - ERYTHEMA [None]
  - INFUSION SITE EXTRAVASATION [None]
  - OEDEMA PERIPHERAL [None]
  - PARAESTHESIA [None]
  - SKIN NECROSIS [None]
  - THERMAL BURN [None]
  - WOUND [None]
